FAERS Safety Report 8894501 (Version 1)
Quarter: 2012Q4

REPORT INFORMATION
  Report Type: 
  Country: AR (occurrence: AR)
  Receive Date: 20121108
  Receipt Date: 20121108
  Transmission Date: 20130627
  Serious: Yes (Hospitalization, Other)
  Sender: FDA-Public Use
  Company Number: AR-AMGEN-ARGSP2012071324

PATIENT
  Age: 40 Year
  Sex: Male

DRUGS (8)
  1. ENBREL [Suspect]
     Indication: ANKYLOSING SPONDYLITIS
     Dosage: 50 mg, weekly
     Route: 058
     Dates: start: 20101101, end: 201209
  2. ENBREL [Suspect]
     Indication: RHEUMATOID ARTHRITIS
  3. ARTRAIT                            /00113801/ [Concomitant]
     Dosage: UNK
  4. ENALAPRIL [Concomitant]
     Dosage: UNK
  5. METHYLPREDNISOLONE [Concomitant]
     Dosage: UNK
  6. FOLIC ACID [Concomitant]
     Dosage: UNK UNK, UNK
  7. CALCIUM [Concomitant]
     Dosage: UNK
  8. ACETYLSALICYLIC ACID [Concomitant]
     Dosage: UNK

REACTIONS (5)
  - Hip arthroplasty [Unknown]
  - Joint arthroplasty [Recovering/Resolving]
  - Joint arthroplasty [Unknown]
  - Immunosuppression [Not Recovered/Not Resolved]
  - Device related infection [Recovering/Resolving]
